FAERS Safety Report 5909289-0 (Version None)
Quarter: 2008Q4

REPORT INFORMATION
  Report Type: 
  Country: None (occurrence: None)
  Receive Date: 20081006
  Receipt Date: 20080924
  Transmission Date: 20090506
  Serious: Yes (Hospitalization)
  Sender: FDA-Public Use
  Company Number: DE-PFIZER INC-2006114404

PATIENT
  Sex: Male
  Weight: 56 kg

DRUGS (7)
  1. SU-011,248 [Suspect]
     Indication: METASTATIC RENAL CELL CARCINOMA
     Route: 048
     Dates: start: 20060320, end: 20060416
  2. SU-011,248 [Suspect]
     Route: 048
     Dates: start: 20060503, end: 20060531
  3. SU-011,248 [Suspect]
     Route: 048
     Dates: start: 20060615, end: 20060711
  4. MOVICOL [Concomitant]
     Route: 048
  5. METAMIDOL [Concomitant]
     Route: 048
  6. MORPHINE SULFATE [Concomitant]
     Route: 048
  7. NOVALGIN [Concomitant]

REACTIONS (1)
  - NEUROLOGICAL EXAMINATION ABNORMAL [None]
